FAERS Safety Report 5954780-4 (Version None)
Quarter: 2008Q4

REPORT INFORMATION
  Report Type: 
  Country: None (occurrence: None)
  Receive Date: 20081112
  Receipt Date: 20080924
  Transmission Date: 20090506
  Serious: Yes (Hospitalization)
  Sender: FDA-Public Use
  Company Number: 001#1#2008-00557

PATIENT
  Sex: Male

DRUGS (8)
  1. NEUPRO [Suspect]
     Indication: PARKINSON'S DISEASE
     Dosage: SEE IMAGE
     Route: 062
     Dates: start: 20080101, end: 20080101
  2. NEUPRO [Suspect]
     Indication: PARKINSON'S DISEASE
     Dosage: SEE IMAGE
     Route: 062
     Dates: start: 20080101, end: 20080101
  3. NEUPRO [Suspect]
     Indication: PARKINSON'S DISEASE
     Dosage: SEE IMAGE
     Route: 062
     Dates: end: 20080919
  4. NEUPRO [Suspect]
     Indication: PARKINSON'S DISEASE
     Dosage: SEE IMAGE
     Route: 062
     Dates: start: 20080212
  5. LISINOPRIL [Concomitant]
  6. SIMVASTATIN [Concomitant]
  7. RANITIDINE [Concomitant]
  8. AZILECT [Concomitant]

REACTIONS (3)
  - DRUG INEFFECTIVE [None]
  - FREEZING PHENOMENON [None]
  - GENERAL PHYSICAL HEALTH DETERIORATION [None]
